FAERS Safety Report 19412680 (Version 8)
Quarter: 2021Q3

REPORT INFORMATION
  Report Type: Report from Study
  Country: US (occurrence: US)
  Receive Date: 20210614
  Receipt Date: 20210908
  Transmission Date: 20211014
  Serious: Yes (Other)
  Sender: FDA-Public Use
  Company Number: US-CLOVIS ONCOLOGY-CLO-2021-000798

PATIENT
  Age: 66 Year
  Sex: Female

DRUGS (4)
  1. RUBRACA [Suspect]
     Active Substance: RUCAPARIB CAMSYLATE
     Indication: OVARIAN CANCER
     Dosage: 600 MILLIGRAM, BID
     Route: 048
     Dates: start: 20210512, end: 20210601
  2. RUBRACA [Suspect]
     Active Substance: RUCAPARIB CAMSYLATE
     Dosage: 600 MILLIGRAM, BID
     Route: 048
     Dates: start: 20210618
  3. RUBRACA [Suspect]
     Active Substance: RUCAPARIB CAMSYLATE
     Dosage: 600 MILLIGRAM, BID
     Route: 048
     Dates: start: 20210512
  4. RUBRACA [Suspect]
     Active Substance: RUCAPARIB CAMSYLATE
     Dosage: 600 MILLIGRAM, BID
     Route: 048
     Dates: start: 20210601, end: 20210617

REACTIONS (28)
  - Hypoaesthesia [Unknown]
  - Constipation [Not Recovered/Not Resolved]
  - Stomatitis [Unknown]
  - Haemoglobin decreased [Unknown]
  - Photosensitivity reaction [Unknown]
  - Fluid retention [Unknown]
  - Tumour marker increased [Recovering/Resolving]
  - Urine abnormality [Not Recovered/Not Resolved]
  - Nausea [Not Recovered/Not Resolved]
  - Hepatic enzyme increased [Not Recovered/Not Resolved]
  - Asthenia [Recovered/Resolved]
  - Lymphadenopathy [Recovering/Resolving]
  - Peripheral swelling [Not Recovered/Not Resolved]
  - Headache [Recovered/Resolved]
  - Blister [Recovered/Resolved]
  - Aspartate aminotransferase increased [Unknown]
  - Dysgeusia [Unknown]
  - Feeling hot [Recovered/Resolved]
  - Depression [Unknown]
  - Alanine aminotransferase increased [Recovering/Resolving]
  - Palpitations [Recovered/Resolved]
  - Temperature intolerance [Unknown]
  - Blood alkaline phosphatase increased [Unknown]
  - Cardiac flutter [Unknown]
  - Platelet count decreased [Unknown]
  - Fatigue [Not Recovered/Not Resolved]
  - Solar dermatitis [Recovered/Resolved]
  - Taste disorder [Not Recovered/Not Resolved]

NARRATIVE: CASE EVENT DATE: 2021
